FAERS Safety Report 5608936-0 (Version None)
Quarter: 2008Q1

REPORT INFORMATION
  Report Type: 
  Country: None (occurrence: None)
  Receive Date: 20080129
  Receipt Date: 20080129
  Transmission Date: 20080703
  Serious: Yes (Life-Threatening, Hospitalization)
  Sender: FDA-Public Use
  Company Number: None

PATIENT
  Age: 68 Year
  Sex: Female
  Weight: 83.9154 kg

DRUGS (1)
  1. ZETIA [Suspect]
     Indication: BLOOD CHOLESTEROL
     Dosage: 1 TABLET DAILY PO
     Route: 048

REACTIONS (6)
  - ARTERIOSCLEROSIS [None]
  - CEREBRAL ARTERY EMBOLISM [None]
  - CEREBRAL DISORDER [None]
  - CEREBRAL INFARCTION [None]
  - NUCLEAR MAGNETIC RESONANCE IMAGING BRAIN ABNORMAL [None]
  - VASCULITIS CEREBRAL [None]
